FAERS Safety Report 12639911 (Version 2)
Quarter: 2017Q4

REPORT INFORMATION
  Report Type: Spontaneous
  Country: JP (occurrence: JP)
  Receive Date: 20160810
  Receipt Date: 20171016
  Transmission Date: 20180320
  Serious: Yes (Death, Life-Threatening, Other)
  Sender: FDA-Public Use
  Company Number: PHJP2016JP016359

PATIENT
  Age: 21 Year
  Sex: Female

DRUGS (3)
  1. SULBACILLIN [Concomitant]
     Active Substance: AMPICILLIN SODIUM\SULBACTAM SODIUM
     Indication: PRODUCT USED FOR UNKNOWN INDICATION
     Dosage: 1 G, BID
     Route: 041
     Dates: start: 20160129, end: 20160203
  2. VOTRIENT [Suspect]
     Active Substance: PAZOPANIB HYDROCHLORIDE
     Indication: UNDIFFERENTIATED SARCOMA
     Dosage: 400 MG, QD
     Route: 048
     Dates: start: 20151019, end: 20160126
  3. YONDELIS [Suspect]
     Active Substance: TRABECTEDIN
     Indication: UNDIFFERENTIATED SARCOMA
     Dosage: 1.25 MG, QD
     Route: 041
     Dates: start: 20160127, end: 20160128

REACTIONS (16)
  - Neutropenia [Not Recovered/Not Resolved]
  - Malaise [Unknown]
  - Pain [Unknown]
  - Depressed level of consciousness [Fatal]
  - Vomiting [Unknown]
  - Bone marrow failure [Unknown]
  - Anaemia [Unknown]
  - Pneumothorax [Unknown]
  - Respiratory failure [Fatal]
  - Dyspnoea [Fatal]
  - Pneumonia [Fatal]
  - Cough [Fatal]
  - Hepatic failure [Recovering/Resolving]
  - Platelet count decreased [Unknown]
  - Nausea [Unknown]
  - Decreased appetite [Unknown]

NARRATIVE: CASE EVENT DATE: 201512
